FAERS Safety Report 8926556 (Version 1)
Quarter: 2012Q4

REPORT INFORMATION
  Report Type: 
  Country: US (occurrence: US)
  Receive Date: 20121127
  Receipt Date: 20121127
  Transmission Date: 20130627
  Serious: Yes (Hospitalization)
  Sender: FDA-Public Use
  Company Number: US-ASTRAZENECA-2012SE86561

PATIENT
  Age: 70 Year
  Sex: Female

DRUGS (7)
  1. BRILINTA [Suspect]
     Route: 048
  2. AMIODARONE [Concomitant]
  3. ATORVASTATIN [Concomitant]
  4. LASIX [Concomitant]
  5. PAXIL [Concomitant]
  6. XANAX [Concomitant]
  7. METOPROLOL [Concomitant]

REACTIONS (1)
  - Dyspnoea [Recovering/Resolving]
